FAERS Safety Report 4946580-9 (Version None)
Quarter: 2006Q1

REPORT INFORMATION
  Report Type: 
  Country: None (occurrence: None)
  Receive Date: 20060313
  Receipt Date: 20060227
  Transmission Date: 20060701
  Serious: Yes (Disabling, Other)
  Sender: FDA-Public Use
  Company Number: 2005135483

PATIENT
  Age: 60 Year
  Sex: Male
  Weight: 90.7194 kg

DRUGS (10)
  1. VIAGRA [Suspect]
     Indication: ILL-DEFINED DISORDER
     Dosage: PRN
     Dates: start: 20040701
  2. CONCERTA [Concomitant]
  3. RITALIN [Concomitant]
  4. LIPITOR [Concomitant]
  5. PREDNISONE TAB [Concomitant]
  6. ASPIRIN [Concomitant]
  7. CENTRUM SILVER (ASCORBIC ACID, CALCIUM, MINERALS NOS, RETINOL, TOCOPHE [Concomitant]
  8. B COMPLEX (NICOTINAMIDE, PYRIDOXINE HYDROCHLORIDE, RIBOFLAVIN, THIAMIN [Concomitant]
  9. LUTEIN (XANTHOPHYLL) [Concomitant]
  10. GINKGO BILOBA [Concomitant]

REACTIONS (20)
  - AMAUROSIS FUGAX [None]
  - ASTHENOPIA [None]
  - BLINDNESS UNILATERAL [None]
  - BLOOD CHOLESTEROL INCREASED [None]
  - BLOOD PRESSURE INCREASED [None]
  - CAROTID ARTERY OCCLUSION [None]
  - CAROTID PULSE ABNORMAL [None]
  - EYE PAIN [None]
  - FATIGUE [None]
  - HEADACHE [None]
  - IMPAIRED DRIVING ABILITY [None]
  - LOW DENSITY LIPOPROTEIN INCREASED [None]
  - OPTIC ATROPHY [None]
  - OPTIC DISC DISORDER [None]
  - OPTIC ISCHAEMIC NEUROPATHY [None]
  - PAIN [None]
  - PANIC ATTACK [None]
  - VISION BLURRED [None]
  - VISUAL ACUITY REDUCED [None]
  - VISUAL FIELD DEFECT [None]
